FAERS Safety Report 17389180 (Version 12)
Quarter: 2021Q2

REPORT INFORMATION
  Report Type: Report from Study
  Country: None (occurrence: US)
  Receive Date: 20200206
  Receipt Date: 20210610
  Transmission Date: 20210716
  Serious: Yes (Hospitalization, Other)
  Sender: FDA-Public Use
  Company Number: US-ABBVIE-20K-163-3263036-00

PATIENT
  Age: 70 Year
  Sex: Female
  Weight: 64.01 kg

DRUGS (11)
  1. HUMIRA [Suspect]
     Active Substance: ADALIMUMAB
     Indication: PSORIASIS
     Route: 058
     Dates: end: 2019
  2. OCUVITE [Concomitant]
     Active Substance: VITAMINS
     Indication: SUPPLEMENTATION THERAPY
  3. COVID?19 VACCINE NOS. [Suspect]
     Active Substance: COVID-19 VACCINE NOS
     Indication: COVID-19 IMMUNISATION
     Route: 030
  4. LUETIN [Concomitant]
     Indication: PRODUCT USED FOR UNKNOWN INDICATION
  5. CALCIUM [Concomitant]
     Active Substance: CALCIUM
     Indication: SUPPLEMENTATION THERAPY
  6. ENSURE [Concomitant]
     Active Substance: AMINO ACIDS\DEXTROSE\ELECTROLYTES NOS\SOYBEAN OIL\VITAMINS
     Indication: SUPPLEMENTATION THERAPY
  7. HUMIRA [Suspect]
     Active Substance: ADALIMUMAB
     Indication: PSORIASIS
     Dosage: CF
     Route: 058
  8. VITAMIN D [Concomitant]
     Active Substance: VITAMIN D NOS
     Indication: SUPPLEMENTATION THERAPY
  9. HUMIRA [Suspect]
     Active Substance: ADALIMUMAB
     Indication: PSORIASIS
     Route: 058
     Dates: start: 2019
  10. OCUVITE [Concomitant]
     Active Substance: VITAMINS
     Indication: HYPERTENSION
  11. CRESTOR [Concomitant]
     Active Substance: ROSUVASTATIN CALCIUM
     Indication: BLOOD CHOLESTEROL INCREASED

REACTIONS (46)
  - Skin abrasion [Recovered/Resolved]
  - Cerebral haemorrhage [Unknown]
  - Gait disturbance [Unknown]
  - Mobility decreased [Recovering/Resolving]
  - Chills [Recovered/Resolved]
  - Stress [Recovered/Resolved]
  - Herpes zoster [Unknown]
  - Macular degeneration [Unknown]
  - Purulent discharge [Unknown]
  - Diarrhoea [Recovering/Resolving]
  - Injury [Unknown]
  - Cerebral haemorrhage [Unknown]
  - Joint swelling [Recovering/Resolving]
  - Feeling hot [Recovered/Resolved]
  - Feeling cold [Recovering/Resolving]
  - Rash [Unknown]
  - Meniscus injury [Recovered/Resolved]
  - Cataract [Unknown]
  - Arthropod bite [Unknown]
  - Scar [Unknown]
  - Pain [Recovered/Resolved]
  - Head injury [Unknown]
  - Decreased appetite [Recovered/Resolved]
  - Urticaria [Unknown]
  - Unevaluable event [Not Recovered/Not Resolved]
  - Injection site haemorrhage [Recovering/Resolving]
  - Concussion [Recovered/Resolved]
  - Facial bones fracture [Recovering/Resolving]
  - Speech disorder [Not Recovered/Not Resolved]
  - Dysgraphia [Not Recovered/Not Resolved]
  - Weight decreased [Not Recovered/Not Resolved]
  - Nasopharyngitis [Unknown]
  - Pyrexia [Recovered/Resolved]
  - Bacterial infection [Recovering/Resolving]
  - Loss of consciousness [Recovered/Resolved]
  - Dysphonia [Unknown]
  - Sunburn [Unknown]
  - Nausea [Recovering/Resolving]
  - Influenza like illness [Recovered/Resolved]
  - Contusion [Not Recovered/Not Resolved]
  - Decreased activity [Recovering/Resolving]
  - Off label use [Not Recovered/Not Resolved]
  - Joint swelling [Not Recovered/Not Resolved]
  - Fall [Recovered/Resolved]
  - Psoriasis [Recovered/Resolved]
  - Fungal infection [Unknown]

NARRATIVE: CASE EVENT DATE: 201810
